FAERS Safety Report 4271799-2 (Version None)
Quarter: 2004Q1

REPORT INFORMATION
  Report Type: 
  Country: None (occurrence: None)
  Receive Date: 20040115
  Receipt Date: 20040102
  Transmission Date: 20041129
  Serious: Yes (Hospitalization)
  Sender: FDA-Public Use
  Company Number: FR-GLAXOSMITHKLINE-B0318899A

PATIENT
  Age: 83 Year
  Sex: Female

DRUGS (4)
  1. DEROXAT [Suspect]
     Dosage: 20MG PER DAY
     Route: 048
     Dates: start: 20031030
  2. LAROXYL [Suspect]
     Dosage: 25MG PER DAY
     Route: 048
     Dates: end: 20031119
  3. COTAREG [Suspect]
     Dosage: 25MG PER DAY
     Route: 048
     Dates: end: 20031119
  4. LORAZEPAM [Concomitant]
     Dosage: 3MG PER DAY
     Route: 048

REACTIONS (9)
  - ASTHENIA [None]
  - BLOOD POTASSIUM DECREASED [None]
  - CONTUSION [None]
  - DIZZINESS [None]
  - DRUG INTERACTION [None]
  - FALL [None]
  - HUMERUS FRACTURE [None]
  - ORTHOSTATIC HYPOTENSION [None]
  - SKELETAL INJURY [None]
